FAERS Safety Report 10228134 (Version 3)
Quarter: 2014Q3

REPORT INFORMATION
  Report Type: Spontaneous
  Country: SE (occurrence: SE)
  Receive Date: 20140610
  Receipt Date: 20140714
  Transmission Date: 20150326
  Serious: Yes (Life-Threatening, Hospitalization)
  Sender: FDA-Public Use
  Company Number: SE-JNJFOC-20140212996

PATIENT
  Age: 78 Year
  Sex: Female

DRUGS (10)
  1. CISORDINOL-ACUTARD [Suspect]
     Active Substance: ZUCLOPENTHIXOL ACETATE
     Indication: PSYCHOTIC DISORDER
     Route: 030
     Dates: start: 20140201, end: 20140201
  2. HALDOL [Suspect]
     Active Substance: HALOPERIDOL
     Indication: PSYCHOTIC DISORDER
     Route: 030
     Dates: start: 20140130, end: 20140130
  3. HALDOL [Suspect]
     Active Substance: HALOPERIDOL
     Indication: PSYCHOTIC DISORDER
     Route: 030
     Dates: start: 20140122, end: 20140123
  4. ZYPADHERA [Suspect]
     Active Substance: OLANZAPINE PAMOATE
     Indication: PRODUCT USED FOR UNKNOWN INDICATION
     Route: 065
     Dates: start: 20140127, end: 20140127
  5. AKINETON [Concomitant]
     Active Substance: BIPERIDEN HYDROCHLORIDE
     Indication: PRODUCT USED FOR UNKNOWN INDICATION
     Route: 065
  6. ZYPADHERA [Suspect]
     Active Substance: OLANZAPINE PAMOATE
     Indication: PSYCHOTIC DISORDER
     Route: 030
     Dates: start: 20140127, end: 20140127
  7. ZYPREXA [Suspect]
     Active Substance: OLANZAPINE
     Indication: PSYCHOTIC DISORDER
     Route: 030
     Dates: start: 20140124, end: 20140124
  8. HALDOL [Suspect]
     Active Substance: HALOPERIDOL
     Indication: PSYCHOTIC DISORDER
     Route: 030
     Dates: start: 20140126, end: 20140127
  9. ZYPADHERA [Suspect]
     Active Substance: OLANZAPINE PAMOATE
     Indication: PSYCHOTIC DISORDER
     Route: 030
  10. STESOLID [Concomitant]
     Active Substance: DIAZEPAM
     Indication: PRODUCT USED FOR UNKNOWN INDICATION
     Route: 065

REACTIONS (4)
  - Extrapyramidal disorder [Recovered/Resolved]
  - Drug ineffective [Unknown]
  - Anxiety [Unknown]
  - Neuroleptic malignant syndrome [Recovered/Resolved]

NARRATIVE: CASE EVENT DATE: 2014
